FAERS Safety Report 7166301-1 (Version None)
Quarter: 2010Q4

REPORT INFORMATION
  Report Type: 
  Country: None (occurrence: None)
  Receive Date: 20101216
  Receipt Date: 20101210
  Transmission Date: 20110411
  Serious: Yes (Death, Other)
  Sender: FDA-Public Use
  Company Number: FR-PFIZER INC-2010165825

PATIENT
  Age: 77 Year
  Sex: Male

DRUGS (2)
  1. TAHOR [Suspect]
     Dosage: UNK
  2. FUCIDINE [Interacting]
     Dosage: UNK

REACTIONS (3)
  - DEATH [None]
  - DRUG INTERACTION [None]
  - RHABDOMYOLYSIS [None]
